FAERS Safety Report 5339204-2 (Version None)
Quarter: 2007Q2

REPORT INFORMATION
  Report Type: 
  Country: None (occurrence: None)
  Receive Date: 20070530
  Receipt Date: 20070525
  Transmission Date: 20071010
  Serious: Yes (Hospitalization, Other)
  Sender: FDA-Public Use
  Company Number: JP-PFIZER INC-2007042105

PATIENT
  Age: 40 Year
  Sex: Male

DRUGS (3)
  1. ZOLOFT [Suspect]
     Indication: BIPOLAR I DISORDER
     Dosage: DAILY DOSE:75MG
     Route: 048
  2. LIMAS [Concomitant]
     Route: 048
  3. PAXIL [Concomitant]
     Indication: BIPOLAR I DISORDER
     Route: 048

REACTIONS (3)
  - ANXIETY [None]
  - IRRITABILITY [None]
  - SUICIDAL IDEATION [None]
